FAERS Safety Report 25574749 (Version 1)
Quarter: 2025Q3

REPORT INFORMATION
  Report Type: Spontaneous
  Country: EU (occurrence: EU)
  Receive Date: 20250718
  Receipt Date: 20250718
  Transmission Date: 20251021
  Serious: Yes (Other)
  Sender: NOVITIUM PHARMA
  Company Number: EU-NOVITIUMPHARMA-2025FRNVP01622

PATIENT
  Age: 37 Year
  Sex: Male

DRUGS (7)
  1. SILDENAFIL CITRATE [Suspect]
     Active Substance: SILDENAFIL CITRATE
     Indication: Product used for unknown indication
  2. COCAINE [Concomitant]
     Active Substance: COCAINE
     Indication: Product used for unknown indication
  3. BENZOYLECGONINE [Concomitant]
     Active Substance: BENZOYLECGONINE
     Indication: Product used for unknown indication
  4. Ecgonine-methylester [Concomitant]
     Indication: Product used for unknown indication
  5. 3-METHYLMETHCATHINONE [Concomitant]
     Active Substance: 3-METHYLMETHCATHINONE
     Indication: Product used for unknown indication
  6. METHAMPHETAMINE [Concomitant]
     Active Substance: METHAMPHETAMINE
     Indication: Product used for unknown indication
  7. OXYBATE [Concomitant]
     Active Substance: OXYBATE
     Indication: Product used for unknown indication

REACTIONS (1)
  - Drug abuse [Unknown]
